FAERS Safety Report 13329487 (Version 2)
Quarter: 2017Q4

REPORT INFORMATION
  Report Type: Spontaneous
  Country: MY (occurrence: MY)
  Receive Date: 20170313
  Receipt Date: 20171106
  Transmission Date: 20180320
  Serious: Yes (Other)
  Sender: FDA-Public Use
  Company Number: MY-VIIV HEALTHCARE LIMITED-MY2017GSK034479

PATIENT
  Sex: Male

DRUGS (2)
  1. LAMIVUDINE. [Suspect]
     Active Substance: LAMIVUDINE
     Indication: CHRONIC HEPATITIS B
     Dosage: UNK
     Dates: end: 2008
  2. LAMIVUDINE. [Suspect]
     Active Substance: LAMIVUDINE
     Dosage: WITH ADEFOVIR
     Dates: end: 2014

REACTIONS (3)
  - Pathogen resistance [Unknown]
  - Liver function test abnormal [Recovering/Resolving]
  - Viral mutation identified [Unknown]

NARRATIVE: CASE EVENT DATE: 2008
